FAERS Safety Report 10222670 (Version 1)
Quarter: 2014Q2

REPORT INFORMATION
  Report Type: Spontaneous
  Country: US (occurrence: US)
  Receive Date: 20140606
  Receipt Date: 20140606
  Transmission Date: 20141212
  Serious: Yes (Hospitalization)
  Sender: FDA-Public Use
  Company Number: US-GILEAD-2013-0078959

PATIENT
  Age: 13 Year
  Sex: Male

DRUGS (1)
  1. TRUVADA [Suspect]
     Indication: PRODUCT USED FOR UNKNOWN INDICATION
     Dosage: UNK
     Dates: start: 20130626, end: 20130706

REACTIONS (3)
  - Blood creatine phosphokinase increased [Unknown]
  - Hepatic enzyme increased [Unknown]
  - Drug eruption [Unknown]
